FAERS Safety Report 17168074 (Version 1)
Quarter: 2019Q4

REPORT INFORMATION
  Report Type: Spontaneous
  Country: US (occurrence: US)
  Receive Date: 20191125
  Receipt Date: 20191125
  Transmission Date: 20200122
  Serious: Yes (Hospitalization)
  Sender: FDA-Public Use
  Company Number: None

PATIENT
  Sex: Female

DRUGS (3)
  1. LEVETIRACETA [Concomitant]
  2. ERIVEDGE [Suspect]
     Active Substance: VISMODEGIB
     Indication: MULTIPLE CONGENITAL ABNORMALITIES
     Dates: start: 20190918
  3. WARFARIN [Concomitant]
     Active Substance: WARFARIN

REACTIONS (2)
  - Hospitalisation [None]
  - Therapy cessation [None]
